FAERS Safety Report 11734744 (Version 1)
Quarter: 2015Q4

REPORT INFORMATION
  Report Type: Spontaneous
  Country: CA (occurrence: US)
  Receive Date: 20151113
  Receipt Date: 20151113
  Transmission Date: 20160304
  Serious: No
  Sender: FDA-Public Use
  Company Number: CA-PFIZER INC-2015381690

PATIENT
  Sex: Female

DRUGS (13)
  1. PROPOXYPHENE. [Suspect]
     Active Substance: PROPOXYPHENE
     Dosage: UNK
  2. AMOXICILLIN. [Suspect]
     Active Substance: AMOXICILLIN
     Dosage: UNK
  3. ERYTHROMYCIN. [Suspect]
     Active Substance: ERYTHROMYCIN
     Dosage: UNK
  4. METHOCARBAMOL. [Suspect]
     Active Substance: METHOCARBAMOL
     Dosage: UNK
  5. FUROSEMIDE. [Suspect]
     Active Substance: FUROSEMIDE
     Dosage: UNK
  6. PROCHLORPERAZINE. [Suspect]
     Active Substance: PROCHLORPERAZINE
  7. TOLMETIN SODIUM. [Suspect]
     Active Substance: TOLMETIN SODIUM
  8. COMTREX (ACETAMINOPHEN\CHLORPHENIRAMINE MALEATE\DEXTROMETHORPHAN HYDROBROMIDE\PHENYLPROPANOLAMINE HYDROCHLORIDE) [Suspect]
     Active Substance: ACETAMINOPHEN\CHLORPHENIRAMINE MALEATE\DEXTROMETHORPHAN HYDROBROMIDE\PHENYLPROPANOLAMINE HYDROCHLORIDE
  9. TOLECTIN [Suspect]
     Active Substance: TOLMETIN SODIUM
  10. SULINDAC. [Suspect]
     Active Substance: SULINDAC
  11. KEFLEX [Suspect]
     Active Substance: CEPHALEXIN
  12. CLINDAMYCIN HCL [Suspect]
     Active Substance: CLINDAMYCIN HYDROCHLORIDE
     Dosage: UNK
  13. MEPERIDINE [Suspect]
     Active Substance: MEPERIDINE
     Dosage: UNK

REACTIONS (1)
  - Drug hypersensitivity [Unknown]
